FAERS Safety Report 5703386-0 (Version None)
Quarter: 2008Q2

REPORT INFORMATION
  Report Type: 
  Country: None (occurrence: None)
  Receive Date: 20080411
  Receipt Date: 20080331
  Transmission Date: 20081010
  Serious: Yes (Other)
  Sender: FDA-Public Use
  Company Number: US-PFIZER INC-2008028687

PATIENT
  Sex: Female
  Weight: 90.7 kg

DRUGS (1)
  1. LYRICA [Suspect]
     Indication: FIBROMYALGIA
     Route: 048
     Dates: start: 20071101, end: 20080101

REACTIONS (8)
  - CYSTITIS [None]
  - DYSURIA [None]
  - FLUID RETENTION [None]
  - GENERALISED OEDEMA [None]
  - OFF LABEL USE [None]
  - RENAL DISORDER [None]
  - RENAL PAIN [None]
  - URINARY RETENTION [None]
